FAERS Safety Report 13890935 (Version 6)
Quarter: 2019Q4

REPORT INFORMATION
  Report Type: Spontaneous
  Country: US (occurrence: US)
  Receive Date: 20170822
  Receipt Date: 20191111
  Transmission Date: 20200122
  Serious: Yes (Hospitalization)
  Sender: FDA-Public Use
  Company Number: US-PFIZER INC-2017361022

PATIENT
  Age: 74 Year
  Sex: Female
  Weight: 70 kg

DRUGS (21)
  1. KLONOPIN [Concomitant]
     Active Substance: CLONAZEPAM
     Indication: ANXIETY
     Dosage: 1 DF, 2X/DAY
     Dates: start: 2007
  2. MAGNESIUM OXIDE. [Concomitant]
     Active Substance: MAGNESIUM OXIDE
     Dosage: 500 MG, 1X/DAY
  3. TIKOSYN [Suspect]
     Active Substance: DOFETILIDE
     Indication: CARDIOMYOPATHY
  4. HYDROCODONE [Concomitant]
     Active Substance: HYDROCODONE
     Indication: PAIN
     Dosage: UNK, AS NEEDED,(10-325MG, COULD TAKE 1 EVERY 4 TO 6 HOURS)
     Dates: start: 2010
  5. LATANOPROST. [Concomitant]
     Active Substance: LATANOPROST
     Dosage: UNK
  6. VITAMIN K [Concomitant]
     Active Substance: PHYTONADIONE
     Dosage: UNK
  7. TIKOSYN [Suspect]
     Active Substance: DOFETILIDE
     Indication: ATRIAL TACHYCARDIA
  8. FENTANYL. [Concomitant]
     Active Substance: FENTANYL
     Indication: PAIN
     Dosage: 25 MG, UNK
     Dates: start: 2017
  9. METOPROLOL TARTRATE. [Concomitant]
     Active Substance: METOPROLOL TARTRATE
     Indication: HEART RATE ABNORMAL
     Dosage: 1 DF, 2X/DAY
     Dates: start: 2017
  10. TIKOSYN [Suspect]
     Active Substance: DOFETILIDE
     Indication: HEART RATE ABNORMAL
     Dosage: 250 UG, 2X/DAY
     Route: 048
  11. TIKOSYN [Suspect]
     Active Substance: DOFETILIDE
     Indication: SINUS NODE DYSFUNCTION
     Dosage: 750 UG, DAILY (2 CAPSULES EVERY MORNING AND ONE CAPSULE IN EVENING)
     Dates: start: 20151006
  12. WARFARIN [Concomitant]
     Active Substance: WARFARIN
     Dosage: UNK
     Dates: start: 2008
  13. ASPIRIN. [Concomitant]
     Active Substance: ASPIRIN
     Dosage: 81 MG, 1X/DAY
     Dates: start: 2008
  14. WARFARIN [Concomitant]
     Active Substance: WARFARIN
     Dosage: UNK
     Dates: start: 2008
  15. LASIX [Concomitant]
     Active Substance: FUROSEMIDE
     Indication: DIURETIC THERAPY
     Dosage: 20 MG, DAILY
     Dates: start: 2008
  16. SYNTHROID [Concomitant]
     Active Substance: LEVOTHYROXINE SODIUM
     Indication: THYROID DISORDER
     Dosage: 1 DF, DAILY
  17. METOPROLOL TARTRATE. [Concomitant]
     Active Substance: METOPROLOL TARTRATE
     Indication: BLOOD PRESSURE ABNORMAL
  18. DORZOLAMIDE [Concomitant]
     Active Substance: DORZOLAMIDE
     Dosage: UNK
  19. TIKOSYN [Suspect]
     Active Substance: DOFETILIDE
     Indication: ATRIAL FLUTTER
  20. POTASSIUM [Concomitant]
     Active Substance: POTASSIUM
     Dosage: 10 MG, ALTERNATE DAY
  21. ZOLOFT [Concomitant]
     Active Substance: SERTRALINE HYDROCHLORIDE
     Indication: DEPRESSION
     Dosage: 1 DF, DAILY
     Dates: start: 2018

REACTIONS (3)
  - Heart rate increased [Recovered/Resolved]
  - Off label use [Unknown]
  - Product use in unapproved indication [Unknown]

NARRATIVE: CASE EVENT DATE: 20170813
